FAERS Safety Report 4910350-8 (Version None)
Quarter: 2006Q1

REPORT INFORMATION
  Report Type: 
  Country: None (occurrence: None)
  Receive Date: 20060209
  Receipt Date: 20060127
  Transmission Date: 20060701
  Serious: Yes (Death)
  Sender: FDA-Public Use
  Company Number: L05-USA-03935-37

PATIENT
  Age: 47 Year
  Sex: Female

DRUGS (6)
  1. CARDIZEM [Suspect]
  2. LEXAPRO [Suspect]
  3. POTASSIUM [Suspect]
  4. COCAINE [Suspect]
  5. NIFEDIPINE [Suspect]
  6. HYDROCHLOROTHIAZIDE [Suspect]

REACTIONS (3)
  - CARDIO-RESPIRATORY ARREST [None]
  - DRUG ABUSER [None]
  - DRUG TOXICITY [None]
